FAERS Safety Report 11340829 (Version 1)
Quarter: 2015Q3

REPORT INFORMATION
  Report Type: Spontaneous
  Country: JP (occurrence: JP)
  Receive Date: 20150805
  Receipt Date: 20150805
  Transmission Date: 20151125
  Serious: Yes (Hospitalization, Other)
  Sender: FDA-Public Use
  Company Number: GXJP2015JP000985

PATIENT
  Age: 78 Year
  Sex: Female

DRUGS (3)
  1. GENTAMICIN. [Concomitant]
     Active Substance: GENTAMICIN
     Indication: ENDOCARDITIS
     Route: 065
  2. CEFEPIME DIHYDROCHLORIDE FOR INTRAVENOUS INJECTION [Suspect]
     Active Substance: CEFEPIME HYDROCHLORIDE
     Indication: ENDOCARDITIS
     Route: 042
  3. AMPICILLIN [Concomitant]
     Active Substance: AMPICILLIN
     Indication: ENDOCARDITIS
     Route: 065

REACTIONS (6)
  - Toxic encephalopathy [Unknown]
  - Altered state of consciousness [Unknown]
  - Generalised non-convulsive epilepsy [Unknown]
  - Lack of spontaneous speech [Unknown]
  - Renal impairment [Unknown]
  - Disease progression [Unknown]
